FAERS Safety Report 5339178-4 (Version None)
Quarter: 2007Q2

REPORT INFORMATION
  Report Type: 
  Country: None (occurrence: None)
  Receive Date: 20070530
  Receipt Date: 20070522
  Transmission Date: 20071010
  Serious: Yes (Other)
  Sender: FDA-Public Use
  Company Number: US-PFIZER INC-2007041638

PATIENT
  Sex: Female
  Weight: 63.636 kg

DRUGS (5)
  1. CELEBREX [Suspect]
     Indication: PAIN
  2. LIPRAM [Concomitant]
     Indication: CHOLELITHIASIS
  3. TYLENOL [Concomitant]
  4. WARFARIN SODIUM [Concomitant]
  5. DIURETICS [Concomitant]
     Indication: SWELLING

REACTIONS (4)
  - HIP FRACTURE [None]
  - PANCREATIC ENLARGEMENT [None]
  - THROMBOSIS [None]
  - UPPER LIMB FRACTURE [None]
